FAERS Safety Report 7376022-8 (Version None)
Quarter: 2011Q1

REPORT INFORMATION
  Report Type: 
  Country: None (occurrence: None)
  Receive Date: 20110325
  Receipt Date: 20110321
  Transmission Date: 20110831
  Serious: Yes (Other)
  Sender: FDA-Public Use
  Company Number: US-PFIZER INC-2008004768

PATIENT
  Sex: Male
  Weight: 79.4 kg

DRUGS (8)
  1. CHANTIX [Suspect]
     Indication: SMOKING CESSATION THERAPY
     Dosage: 0.5 MG, 1X/DAY
     Route: 048
     Dates: start: 20070101
  2. CENTRUM SILVER [Concomitant]
     Dosage: UNK
     Route: 048
  3. ESTER-C [Concomitant]
     Dosage: 1000 MG, UNK
     Route: 048
  4. BENADRYL [Concomitant]
     Dosage: UNK
  5. DIAZEPAM [Concomitant]
     Indication: TINNITUS
     Dosage: 5 MG, 2X/DAY
     Route: 048
  6. VITAMIN D [Concomitant]
     Dosage: 400 IU, UNK
     Route: 048
  7. LIPOFLAVONOID [Concomitant]
     Indication: TINNITUS
     Dosage: UNK
  8. ACETYLSALICYLIC ACID [Concomitant]
     Indication: BLOOD DISORDER
     Dosage: 81 MG, 1X/DAY
     Route: 048
     Dates: start: 20010101

REACTIONS (10)
  - TINNITUS [None]
  - ABNORMAL DREAMS [None]
  - ATRIAL FIBRILLATION [None]
  - OROPHARYNGEAL PAIN [None]
  - PNEUMONIA [None]
  - UPPER-AIRWAY COUGH SYNDROME [None]
  - NIGHTMARE [None]
  - RHINORRHOEA [None]
  - INSOMNIA [None]
  - FATIGUE [None]
